FAERS Safety Report 5240652-X (Version None)
Quarter: 2007Q1

REPORT INFORMATION
  Report Type: 
  Country: None (occurrence: None)
  Receive Date: 20061208
  Receipt Date: 20051111
  Transmission Date: 20070707
  Serious: Yes (Other)
  Sender: FDA-Public Use
  Company Number: 2004UW18838

PATIENT

DRUGS (1)
  1. CRESTOR [Suspect]
     Dates: start: 20031001

REACTIONS (2)
  - CARDIOVASCULAR DISORDER [None]
  - DEAFNESS UNILATERAL [None]
